FAERS Safety Report 13754456 (Version 1)
Quarter: 2017Q3

REPORT INFORMATION
  Report Type: Report from Study
  Country: IT (occurrence: IT)
  Receive Date: 20170714
  Receipt Date: 20170714
  Transmission Date: 20171127
  Serious: Yes (Life-Threatening, Hospitalization, Other)
  Sender: FDA-Public Use
  Company Number: IT-BAXTER-2017BAX027407

PATIENT
  Age: 67 Year
  Sex: Female

DRUGS (14)
  1. RITUXIMAB. [Suspect]
     Active Substance: RITUXIMAB
     Indication: LYMPHOMA
     Dosage: RDAOX CHEMOTHERAPY, AT DAY 1
     Route: 042
     Dates: start: 20170215
  2. PALONOSETRON CLORIDRATO [Concomitant]
     Active Substance: PALONOSETRON HYDROCHLORIDE
     Indication: ANTIEMETIC SUPPORTIVE CARE
     Route: 042
     Dates: start: 20170619, end: 20170621
  3. RANITIDINA CLORIDRATO [Concomitant]
     Indication: ANTACID THERAPY
     Route: 042
     Dates: start: 20170619, end: 20170621
  4. HOLOXAN [Suspect]
     Active Substance: IFOSFAMIDE
     Indication: LYMPHOMA
     Dosage: AT DAY 1, 2 AND 3
     Route: 042
     Dates: start: 20170522
  5. UROMITEXAN 400 MG/ 4ML [Suspect]
     Active Substance: MESNA
     Indication: PROPHYLACTIC CHEMOTHERAPY
     Route: 042
     Dates: start: 20170619, end: 20170621
  6. LONQUEX [Suspect]
     Active Substance: LIPEGFILGRASTIM
     Indication: PROPHYLAXIS
     Route: 058
     Dates: start: 20170219
  7. EPIRUBICINA [Suspect]
     Active Substance: EPIRUBICIN
     Indication: LYMPHOMA
     Dosage: AT DAY 1
     Route: 065
     Dates: start: 20170522
  8. RITUXIMAB. [Suspect]
     Active Substance: RITUXIMAB
     Route: 042
     Dates: start: 20170522
  9. OXALIPLATINO [Concomitant]
     Active Substance: OXALIPLATIN
     Indication: LYMPHOMA
     Dosage: RDAOX CHEMOTHERAPY
     Route: 065
     Dates: start: 20170214, end: 20170214
  10. ETOPOSIDE. [Suspect]
     Active Substance: ETOPOSIDE
     Indication: LYMPHOMA
     Dosage: DAYS 1, 2 AND 3
     Route: 042
     Dates: start: 20170522
  11. DESAMETASONE [Concomitant]
     Active Substance: DEXAMETHASONE
     Indication: ANTIINFLAMMATORY THERAPY
     Dosage: RDAOX CHEMOTHERAPY
     Route: 042
     Dates: start: 20170214, end: 20170414
  12. CLORFENAMINE MALEATO [Concomitant]
     Indication: ANTIALLERGIC THERAPY
     Route: 042
     Dates: start: 20170619, end: 20170619
  13. CYTARABINA [Concomitant]
     Indication: LYMPHOMA
     Dosage: RDAOX CHEMOTHERAPY
     Route: 065
     Dates: start: 20170215, end: 20170215
  14. DESAMETASONE [Concomitant]
     Active Substance: DEXAMETHASONE
     Route: 042
     Dates: start: 20170619, end: 20170621

REACTIONS (1)
  - Transient ischaemic attack [Recovering/Resolving]

NARRATIVE: CASE EVENT DATE: 20170621
